FAERS Safety Report 6759734-6 (Version None)
Quarter: 2010Q2

REPORT INFORMATION
  Report Type: 
  Country: None (occurrence: None)
  Receive Date: 20100608
  Receipt Date: 20100601
  Transmission Date: 20101027
  Serious: Yes (Other)
  Sender: FDA-Public Use
  Company Number: US-JNJFOC-20100201940

PATIENT
  Sex: Male
  Weight: 83.92 kg

DRUGS (11)
  1. DURAGESIC-100 [Suspect]
     Indication: PAIN
     Route: 062
  2. DURAGESIC-100 [Suspect]
     Route: 062
  3. DURAGESIC-100 [Suspect]
     Indication: MULTIPLE SCLEROSIS
     Route: 062
  4. DURAGESIC-100 [Suspect]
     Route: 062
  5. DURAGESIC-100 [Suspect]
     Route: 062
  6. DURAGESIC-100 [Suspect]
     Route: 062
  7. DURAGESIC-100 [Suspect]
     Route: 062
  8. DURAGESIC-100 [Suspect]
     Route: 062
  9. PROVIGIL [Concomitant]
     Indication: FATIGUE
     Route: 048
  10. PROVIGIL [Concomitant]
     Indication: MULTIPLE SCLEROSIS
     Route: 048
  11. ACTIQ [Concomitant]
     Indication: NEURALGIA
     Route: 048

REACTIONS (6)
  - APPLICATION SITE ERYTHEMA [None]
  - FEELING ABNORMAL [None]
  - FLUSHING [None]
  - MULTIPLE SCLEROSIS RELAPSE [None]
  - NEUROPATHY PERIPHERAL [None]
  - PRODUCT QUALITY ISSUE [None]
